FAERS Safety Report 14988031 (Version 1)
Quarter: 2018Q2

REPORT INFORMATION
  Report Type: Report from Study
  Country: US (occurrence: US)
  Receive Date: 20180608
  Receipt Date: 20180608
  Transmission Date: 20180711
  Serious: Yes (Death)
  Sender: FDA-Public Use
  Company Number: US-ASTRAZENECA-2017SE26061

PATIENT
  Age: 82 Year
  Sex: Female

DRUGS (16)
  1. TAGRISSO [Suspect]
     Active Substance: OSIMERTINIB
     Indication: LUNG NEOPLASM MALIGNANT
     Route: 048
     Dates: start: 20170228
  2. TAGRISSO [Suspect]
     Active Substance: OSIMERTINIB
     Indication: LUNG CARCINOMA CELL TYPE UNSPECIFIED STAGE 0
     Route: 048
     Dates: start: 20170228
  3. ATORVASTATIN CALCIUM. [Concomitant]
     Active Substance: ATORVASTATIN CALCIUM
  4. PANTOPRAZOLE SODIUM. [Concomitant]
     Active Substance: PANTOPRAZOLE SODIUM
  5. ACETYLSALICYLIC ACID [Concomitant]
     Active Substance: ASPIRIN
  6. CARVEDILOL. [Concomitant]
     Active Substance: CARVEDILOL
  7. FUROSEMIDE. [Concomitant]
     Active Substance: FUROSEMIDE
  8. SODIUM CHLORIDE. [Concomitant]
     Active Substance: SODIUM CHLORIDE
  9. TAGRISSO [Suspect]
     Active Substance: OSIMERTINIB
     Indication: LUNG CARCINOMA CELL TYPE UNSPECIFIED STAGE 0
     Route: 048
     Dates: start: 20170302
  10. MUPIROCIN. [Concomitant]
     Active Substance: MUPIROCIN
  11. CLONIDINE. [Concomitant]
     Active Substance: CLONIDINE
  12. FOLIC ACID. [Concomitant]
     Active Substance: FOLIC ACID
  13. TAGRISSO [Suspect]
     Active Substance: OSIMERTINIB
     Indication: LUNG NEOPLASM MALIGNANT
     Route: 048
     Dates: start: 20170302
  14. RAMIPRIL. [Concomitant]
     Active Substance: RAMIPRIL
  15. SEVELAMER HYDROCHLORIDE [Concomitant]
     Active Substance: SEVELAMER HYDROCHLORIDE
  16. CLOTRIMAZOLE AND BETAMETHASONE DIPROPIONATE [Concomitant]
     Active Substance: BETAMETHASONE\BETAMETHASONE DIPROPIONATE\CLOTRIMAZOLE

REACTIONS (5)
  - Nail disorder [Unknown]
  - Joint swelling [Unknown]
  - Drug dose omission [Recovered/Resolved]
  - Death [Fatal]
  - Asthenia [Unknown]
